FAERS Safety Report 6552318-4 (Version None)
Quarter: 2010Q1

REPORT INFORMATION
  Report Type: 
  Country: None (occurrence: None)
  Receive Date: 20100120
  Receipt Date: 20100108
  Transmission Date: 20100710
  Serious: Yes (Other)
  Sender: FDA-Public Use
  Company Number: ALA_00404_2010

PATIENT
  Sex: Male

DRUGS (3)
  1. METOCLOPRAMIDE [Suspect]
     Indication: GASTROOESOPHAGEAL REFLUX DISEASE
     Dosage: SEE IMAGE
  2. METOCLOPRAMIDE [Suspect]
     Indication: PROPHYLAXIS
     Dosage: SEE IMAGE
  3. METOCLOPRAMIDE [Suspect]
     Indication: RESPIRATORY TRACT IRRITATION
     Dosage: SEE IMAGE

REACTIONS (6)
  - BLOOD THYROID STIMULATING HORMONE INCREASED [None]
  - GALACTORRHOEA [None]
  - GYNAECOMASTIA [None]
  - HYPERPROLACTINAEMIA [None]
  - RESPIRATORY DISTRESS [None]
  - STRIDOR [None]
